FAERS Safety Report 9684532 (Version 2)
Quarter: 2013Q4

REPORT INFORMATION
  Report Type: Spontaneous
  Country: SI (occurrence: None)
  Receive Date: 20131108
  Receipt Date: 20131119
  Transmission Date: 20140711
  Serious: Yes (Hospitalization)
  Sender: FDA-Public Use
  Company Number: 7247778

PATIENT
  Age: 41 Year
  Sex: Female

DRUGS (1)
  1. LEVOTHYROXINE SODIUM [Suspect]
     Indication: HYPOTHYROIDISM

REACTIONS (7)
  - Muscle twitching [None]
  - Muscle spasms [None]
  - Balance disorder [None]
  - Food poisoning [None]
  - Diplopia [None]
  - Ataxia [None]
  - Muscle twitching [None]
